FAERS Safety Report 5060834-X (Version None)
Quarter: 2006Q3

REPORT INFORMATION
  Report Type: 
  Country: None (occurrence: None)
  Receive Date: 20060725
  Receipt Date: 20060721
  Transmission Date: 20061208
  Serious: Yes (Other)
  Sender: FDA-Public Use
  Company Number: US-GLAXOSMITHKLINE-A0613140A

PATIENT
  Age: 55 Year
  Sex: Female

DRUGS (5)
  1. WELLBUTRIN XL [Suspect]
     Indication: DEPRESSION
     Dosage: 150MG PER DAY
     Route: 048
     Dates: start: 20060406, end: 20060505
  2. TOPAMAX [Concomitant]
  3. LIPITOR [Concomitant]
  4. TRAZODONE HCL [Concomitant]
  5. OMEPRAZOLE [Concomitant]

REACTIONS (7)
  - CONFUSIONAL STATE [None]
  - CONSTIPATION [None]
  - DEMENTIA [None]
  - DISORIENTATION [None]
  - MEMORY IMPAIRMENT [None]
  - SOLILOQUY [None]
  - URINE OUTPUT DECREASED [None]
